FAERS Safety Report 5764654-X (Version None)
Quarter: 2008Q2

REPORT INFORMATION
  Report Type: 
  Country: None (occurrence: None)
  Receive Date: 20080611
  Receipt Date: 20080510
  Transmission Date: 20081010
  Serious: Yes (Death, Hospitalization)
  Sender: FDA-Public Use
  Company Number: PHHO2006HU20290

PATIENT
  Sex: Female
  Weight: 66 kg

DRUGS (2)
  1. TASIGNA [Suspect]
     Indication: CHRONIC MYELOID LEUKAEMIA
     Dosage: 800MG DAILY
     Route: 048
     Dates: start: 20060714, end: 20061128
  2. MEDROL [Suspect]
     Indication: SARCOIDOSIS
     Route: 048
     Dates: start: 20061014, end: 20061127

REACTIONS (40)
  - AORTIC ARTERIOSCLEROSIS [None]
  - ARTERIOSCLEROSIS [None]
  - ASTHENIA [None]
  - BRONCHOPNEUMONIA [None]
  - C-REACTIVE PROTEIN INCREASED [None]
  - CARDIAC FAILURE [None]
  - CARDIOMYOPATHY [None]
  - CAROTID ARTERIOSCLEROSIS [None]
  - CONFUSIONAL STATE [None]
  - COUGH [None]
  - DIZZINESS [None]
  - ENDOCARDITIS [None]
  - GOITRE [None]
  - HEPATIC ENZYME INCREASED [None]
  - HEPATIC FAILURE [None]
  - HEPATIC LESION [None]
  - HEPATIC NECROSIS [None]
  - HYPOTENSION [None]
  - HYPOXIA [None]
  - LEFT VENTRICULAR HYPERTROPHY [None]
  - LIVER FUNCTION TEST ABNORMAL [None]
  - LIVIDITY [None]
  - LOSS OF CONSCIOUSNESS [None]
  - LUNG INFILTRATION [None]
  - LUNG NEOPLASM [None]
  - MARROW HYPERPLASIA [None]
  - MEGAKARYOCYTES INCREASED [None]
  - METABOLIC ACIDOSIS [None]
  - MYOPATHY [None]
  - NAUSEA [None]
  - PALLOR [None]
  - PNEUMONIA FUNGAL [None]
  - PULMONARY MYCOSIS [None]
  - PULMONARY OEDEMA [None]
  - PYREXIA [None]
  - RECTAL ULCER [None]
  - SEPSIS [None]
  - SEPTIC SHOCK [None]
  - VAGINAL ULCERATION [None]
  - VOMITING [None]
